FAERS Safety Report 24357869 (Version 1)
Quarter: 2024Q3

REPORT INFORMATION
  Report Type: Spontaneous
  Country: GB (occurrence: GB)
  Receive Date: 20240924
  Receipt Date: 20240924
  Transmission Date: 20241016
  Serious: Yes (Other)
  Sender: ELI LILLY AND CO
  Company Number: None

PATIENT
  Age: 38 Year
  Sex: Female
  Weight: 90 kg

DRUGS (3)
  1. MOUNJARO [Suspect]
     Active Substance: TIRZEPATIDE
     Indication: Weight control
     Dosage: UNK UNK, UNKNOWN (7.5)
     Route: 065
     Dates: start: 20240620
  2. AMITRIPTYLINE [Concomitant]
     Active Substance: AMITRIPTYLINE
     Indication: Pain
     Dosage: UNK UNK, UNKNOWN
     Route: 065
  3. CEPHALORIDINE [Concomitant]
     Active Substance: CEPHALORIDINE
     Indication: Contraception
     Dosage: UNK UNK, UNKNOWN
     Route: 065

REACTIONS (1)
  - Uterine spasm [Recovered/Resolved]

NARRATIVE: CASE EVENT DATE: 20240909
